FAERS Safety Report 4737767-9 (Version None)
Quarter: 2005Q3

REPORT INFORMATION
  Report Type: 
  Country: None (occurrence: None)
  Receive Date: 20050802
  Receipt Date: 20050601
  Transmission Date: 20060218
  Serious: Yes (Hospitalization)
  Sender: FDA-Public Use
  Company Number: WAES 0507NLD00011

PATIENT
  Age: 7 Year
  Sex: Male

DRUGS (3)
  1. DECADRON [Suspect]
  2. LACTITOL [Concomitant]
  3. VINCRISTINE SULFATE [Concomitant]

REACTIONS (1)
  - PNEUMATOSIS INTESTINALIS [None]
